FAERS Safety Report 9101595 (Version 1)
Quarter: 2013Q1

REPORT INFORMATION
  Report Type: Spontaneous
  Country: NL (occurrence: NL)
  Receive Date: 20130218
  Receipt Date: 20130218
  Transmission Date: 20140127
  Serious: Yes (Life-Threatening, Hospitalization, Other)
  Sender: FDA-Public Use
  Company Number: NL-TEVA-385330ISR

PATIENT
  Age: 53 Year
  Sex: Female
  Weight: 94 kg

DRUGS (7)
  1. ETOPOSIDE [Suspect]
     Indication: NEUROENDOCRINE TUMOUR
     Dosage: EXTRA INFO: 1D200MG
     Route: 042
     Dates: start: 20130109, end: 20130117
  2. CISPLATINE [Interacting]
     Indication: NEUROENDOCRINE TUMOUR
     Dosage: EXTRA INFO: 1D150MG
     Route: 042
     Dates: start: 20130109, end: 20130117
  3. ENALAPRIL MALEAAT PCH TABLET 10MG [Concomitant]
     Dosage: 1  DD 10 MG
     Route: 048
  4. DEXAMETHASON CF INJVLST  4MG/ML AMPUL 1ML [Concomitant]
     Dosage: 1 DD 4 MG
     Route: 030
  5. EMEND CAPSULE 125MG [Concomitant]
     Dosage: 1 DD 125 MG
     Route: 048
  6. MAGNESIUMHYDROXIDE PCH KAUWTABLET 724MG [Concomitant]
     Dosage: 3 DD 1
     Route: 048
  7. SALOFALK GRANU-STIX GRANULAAT MGA 3G IN SACHET [Concomitant]
     Dosage: 1 DD; EIGEN BEHEER
     Route: 048

REACTIONS (1)
  - Arterial thrombosis [Recovered/Resolved with Sequelae]
